FAERS Safety Report 6644471-9 (Version None)
Quarter: 2010Q1

REPORT INFORMATION
  Report Type: 
  Country: None (occurrence: None)
  Receive Date: 20100322
  Receipt Date: 20100308
  Transmission Date: 20100710
  Serious: Yes (Hospitalization)
  Sender: FDA-Public Use
  Company Number: DE-ROCHE-691973

PATIENT
  Sex: Female
  Weight: 82 kg

DRUGS (2)
  1. PEG-INTERFERON A-2A (RO 25-8310) [Suspect]
     Route: 058
     Dates: start: 20100113, end: 20100306
  2. RIBAVIRIN [Suspect]
     Dosage: 1200 PER DAY (NO DOSAGE PROVIDED)
     Route: 065
     Dates: start: 20100113, end: 20100306

REACTIONS (1)
  - BLOOD TEST ABNORMAL [None]
